FAERS Safety Report 8241995-8 (Version None)
Quarter: 2012Q1

REPORT INFORMATION
  Report Type: 
  Country: None (occurrence: None)
  Receive Date: 20120329
  Receipt Date: 20120322
  Transmission Date: 20120608
  Serious: No
  Sender: FDA-Public Use
  Company Number: US-BIOGENIDEC-2012BI005499

PATIENT
  Sex: Male

DRUGS (1)
  1. TYSABRI [Suspect]
     Indication: MULTIPLE SCLEROSIS
     Route: 042
     Dates: start: 20120202, end: 20120202

REACTIONS (9)
  - NAUSEA [None]
  - PAIN [None]
  - FATIGUE [None]
  - CHEST PAIN [None]
  - MALAISE [None]
  - HYPOAESTHESIA [None]
  - ARTHRALGIA [None]
  - BACK PAIN [None]
  - HEADACHE [None]
